FAERS Safety Report 10078380 (Version 1)
Quarter: 2014Q2

REPORT INFORMATION
  Report Type: Spontaneous
  Country: AU (occurrence: AU)
  Receive Date: 20140415
  Receipt Date: 20140415
  Transmission Date: 20141212
  Serious: Yes (Hospitalization, Other)
  Sender: FDA-Public Use
  Company Number: AU-ACCORD-023076

PATIENT
  Age: 66 Year
  Sex: Male
  Weight: 80 kg

DRUGS (5)
  1. AMLODIPINE [Suspect]
  2. OLMESARTAN MEDOXOMI [Suspect]
  3. DABIGATRAN ETEXILATE [Suspect]
  4. MOXONIDINE [Suspect]
  5. METOPROLOL [Suspect]

REACTIONS (8)
  - Somnolence [Recovered/Resolved]
  - Hypotension [Recovered/Resolved]
  - Bradycardia [Recovered/Resolved]
  - Coagulopathy [Recovered/Resolved]
  - Renal impairment [Recovering/Resolving]
  - Haemodynamic instability [Recovered/Resolved]
  - Suicidal ideation [Unknown]
  - Overdose [Unknown]
